FAERS Safety Report 8608204-9 (Version None)
Quarter: 2012Q3

REPORT INFORMATION
  Report Type: 
  Country: None (occurrence: None)
  Receive Date: 20120821
  Receipt Date: 20120814
  Transmission Date: 20120928
  Serious: Yes (Hospitalization, Other)
  Sender: FDA-Public Use
  Company Number: US-PFIZER INC-2012166135

PATIENT
  Age: 47 Year
  Sex: Male
  Weight: 71.202 kg

DRUGS (3)
  1. KEPPRA [Suspect]
     Indication: CONVULSION
     Dosage: 250 MG, 2X/DAY
     Dates: start: 20120101
  2. DILANTIN [Suspect]
     Dosage: 100 MG, 4X/DAY
     Route: 048
  3. DILANTIN [Suspect]
     Indication: CONVULSION
     Dosage: 100 MG, 3X/DAY
     Route: 048

REACTIONS (5)
  - PAIN [None]
  - DRUG LEVEL INCREASED [None]
  - CONVULSION [None]
  - ACCIDENT [None]
  - INJURY [None]
